FAERS Safety Report 23190181 (Version 5)
Quarter: 2024Q1

REPORT INFORMATION
  Report Type: Report from Study
  Country: US (occurrence: US)
  Receive Date: 20231116
  Receipt Date: 20240227
  Transmission Date: 20240409
  Serious: Yes (Other)
  Sender: FDA-Public Use
  Company Number: US-HORIZON THERAPEUTICS-HZN-2023-009155

PATIENT

DRUGS (3)
  1. TEPEZZA [Suspect]
     Active Substance: TEPROTUMUMAB-TRBW
     Indication: Endocrine ophthalmopathy
     Dosage: UNK UNK, EVERY 3 WEEKS
     Route: 042
     Dates: start: 20231026
  2. TEPEZZA [Suspect]
     Active Substance: TEPROTUMUMAB-TRBW
     Dosage: UNK UNK, EVERY 3 WEEKS
     Route: 042
     Dates: start: 20231116
  3. COLESTIPOL [Concomitant]
     Active Substance: COLESTIPOL
     Dosage: 5 G, TID
     Route: 065

REACTIONS (4)
  - Diarrhoea haemorrhagic [Unknown]
  - Frequent bowel movements [Recovered/Resolved]
  - Anorectal discomfort [Recovered/Resolved]
  - Dyschezia [Recovered/Resolved]

NARRATIVE: CASE EVENT DATE: 20031116
